FAERS Safety Report 5522105-4 (Version None)
Quarter: 2007Q4

REPORT INFORMATION
  Report Type: 
  Country: None (occurrence: None)
  Receive Date: 20071120
  Receipt Date: 20071108
  Transmission Date: 20080405
  Serious: Yes (Hospitalization)
  Sender: FDA-Public Use
  Company Number: HQWYE637318APR07

PATIENT
  Sex: Male
  Weight: 93 kg

DRUGS (11)
  1. RAPAMUNE [Suspect]
     Indication: PROPHYLAXIS AGAINST TRANSPLANT REJECTION
     Route: 048
     Dates: start: 20050306
  2. QUININE SULFATE [Concomitant]
     Dosage: UNKNOWN
     Route: 065
  3. TOPROL-XL [Concomitant]
     Route: 065
  4. VYTORIN [Concomitant]
     Dosage: ^10/40 MG DAILY^
     Route: 065
  5. METHOTREXATE [Concomitant]
     Dosage: UNKNOWN
     Route: 065
  6. MULTI-VITAMINS [Concomitant]
     Dosage: UNKNOWN
     Route: 065
  7. ISOSORBIDE MONONITRATE [Concomitant]
     Route: 065
  8. NEURONTIN [Concomitant]
     Dosage: UNKNOWN
     Route: 065
  9. PROTONIX [Concomitant]
     Dosage: UNKNOWN
     Route: 065
  10. PREDNISONE TAB [Suspect]
     Indication: PROPHYLAXIS AGAINST TRANSPLANT REJECTION
     Dosage: UNKNOWN
     Route: 065
  11. ACETYLSALICYLIC ACID SRT [Concomitant]
     Dosage: UNKNOWN
     Route: 065

REACTIONS (2)
  - ATRIAL FIBRILLATION [None]
  - LUNG INFILTRATION [None]
